FAERS Safety Report 7286132-1 (Version None)
Quarter: 2011Q1

REPORT INFORMATION
  Report Type: 
  Country: None (occurrence: None)
  Receive Date: 20110131
  Receipt Date: 20101231
  Transmission Date: 20110831
  Serious: Yes (Death)
  Sender: FDA-Public Use
  Company Number: AUR-APL-2011-00144

PATIENT
  Age: 42 Year
  Sex: Male

DRUGS (3)
  1. ACETAMINOPHEN [Suspect]
     Dosage: - ORAL
     Route: 048
  2. ETHANOL [Suspect]
     Dosage: - ORAL
     Route: 048
  3. METFORMIN [Suspect]
     Dosage: - ORAL
     Route: 048

REACTIONS (1)
  - COMPLETED SUICIDE [None]
